FAERS Safety Report 7576300-3 (Version None)
Quarter: 2011Q2

REPORT INFORMATION
  Report Type: 
  Country: None (occurrence: None)
  Receive Date: 20110628
  Receipt Date: 20110615
  Transmission Date: 20111010
  Serious: No
  Sender: FDA-Public Use
  Company Number: US-BAYER-2011-052171

PATIENT
  Age: 31 Year
  Sex: Female
  Weight: 86 kg

DRUGS (1)
  1. ALEVE-D SINUS + COLD [Suspect]
     Indication: SINUS HEADACHE
     Dosage: COUNT SIZE 20S
     Route: 048
     Dates: start: 20110610, end: 20110613

REACTIONS (2)
  - ABDOMINAL PAIN UPPER [None]
  - NAUSEA [None]
